FAERS Safety Report 5186466-0 (Version None)
Quarter: 2006Q4

REPORT INFORMATION
  Report Type: 
  Country: None (occurrence: None)
  Receive Date: 20061213
  Receipt Date: 20061204
  Transmission Date: 20070319
  Serious: Yes (Hospitalization)
  Sender: FDA-Public Use
  Company Number: 2006S1000292

PATIENT
  Age: 29 Year
  Sex: Male

DRUGS (3)
  1. SORIATANE [Suspect]
     Indication: PSORIASIS
     Dosage: 20 MG; QD; PO; SEE IMAGE
     Route: 048
     Dates: start: 19980101, end: 19980101
  2. SORIATANE [Suspect]
     Indication: PSORIASIS
     Dosage: 20 MG; QD; PO; SEE IMAGE
     Route: 048
     Dates: start: 20000101, end: 20000101
  3. SORIATANE [Suspect]
     Indication: PSORIASIS
     Dosage: 20 MG; QD; PO; SEE IMAGE
     Route: 048
     Dates: start: 20020401, end: 20020401

REACTIONS (1)
  - DERMATITIS EXFOLIATIVE [None]
